FAERS Safety Report 22148464 (Version 1)
Quarter: 2023Q1

REPORT INFORMATION
  Report Type: Spontaneous
  Country: US (occurrence: US)
  Receive Date: 20230328
  Receipt Date: 20230328
  Transmission Date: 20230418
  Serious: No
  Sender: FDA-Public Use
  Company Number: US-SA-SAC20230324000860

PATIENT
  Sex: Male

DRUGS (3)
  1. DUPIXENT [Suspect]
     Active Substance: DUPILUMAB
     Indication: Dermatitis atopic
     Dosage: 300 MG, QOW
     Route: 058
     Dates: start: 20211216
  2. CICLOPIROX [Concomitant]
     Active Substance: CICLOPIROX
     Dosage: UNK
  3. HYDROCORTISONE VALERATE [Concomitant]
     Active Substance: HYDROCORTISONE VALERATE
     Dosage: UNK

REACTIONS (3)
  - Discomfort [Unknown]
  - Sleep disorder [Unknown]
  - Dermatitis atopic [Unknown]
